FAERS Safety Report 23529627 (Version 3)
Quarter: 2024Q2

REPORT INFORMATION
  Report Type: Report from Study
  Country: BR (occurrence: BR)
  Receive Date: 20240216
  Receipt Date: 20240423
  Transmission Date: 20240716
  Serious: Yes (Hospitalization, Other)
  Sender: FDA-Public Use
  Company Number: BR-AstraZeneca-2023A140728

PATIENT
  Age: 204 Day
  Sex: Female
  Weight: 8.5 kg

DRUGS (6)
  1. SYNAGIS [Suspect]
     Active Substance: PALIVIZUMAB
     Indication: Respiratory syncytial virus test
     Route: 030
     Dates: start: 202303
  2. AMOXICILLIN [Concomitant]
     Active Substance: AMOXICILLIN
     Indication: Product used for unknown indication
     Dosage: 2.0 ML EVERY 8 TO 12 HOURS
     Route: 048
  3. PREDNISONE [Concomitant]
     Active Substance: PREDNISONE
     Indication: Product used for unknown indication
     Dosage: 3.0 ML ONCE A DAY
     Route: 048
  4. DIPYRONE [Concomitant]
     Active Substance: DIPYRONE
     Indication: Product used for unknown indication
     Route: 048
  5. FERROUS SULFATE [Concomitant]
     Active Substance: FERROUS SULFATE
     Indication: Product used for unknown indication
     Dosage: 20 DROPS ONCE A DAY
     Route: 048
  6. AD-TIL [Concomitant]
     Indication: Product used for unknown indication
     Dosage: 4 DROPS
     Route: 048

REACTIONS (11)
  - Insomnia [Unknown]
  - Feeding disorder [Recovered/Resolved]
  - Bronchiolitis [Recovered/Resolved]
  - Influenza [Unknown]
  - Viral infection [Unknown]
  - Nausea [Recovered/Resolved]
  - Dyspnoea [Unknown]
  - Fatigue [Unknown]
  - Cough [Recovering/Resolving]
  - Asthenia [Unknown]
  - Pyrexia [Unknown]

NARRATIVE: CASE EVENT DATE: 20230515
